FAERS Safety Report 21464833 (Version 1)
Quarter: 2022Q4

REPORT INFORMATION
  Report Type: Spontaneous
  Country: US (occurrence: None)
  Receive Date: 20221014
  Receipt Date: 20221014
  Transmission Date: 20230113
  Serious: No
  Sender: FDA-Public Use
  Company Number: None

PATIENT
  Age: 86 Year
  Sex: Male
  Weight: 79.2 kg

DRUGS (33)
  1. CAPECITABINE [Suspect]
     Active Substance: CAPECITABINE
     Indication: Colon cancer
     Dosage: OTHER QUANTITY : 2000-1500MG ;?FREQUENCY : TWICE A DAY;?
     Route: 048
     Dates: start: 202205
  2. ACETAMINOPHEN [Concomitant]
     Active Substance: ACETAMINOPHEN
  3. ACITRETIN [Concomitant]
     Active Substance: ACITRETIN
  4. ATORVASTATIN [Concomitant]
     Active Substance: ATORVASTATIN
  5. CALCIUM 500 + D3 [Concomitant]
  6. DIPHENHYDRAMINE [Concomitant]
     Active Substance: DIPHENHYDRAMINE
  7. ELIQUIS [Concomitant]
     Active Substance: APIXABAN
  8. EVUSHELD [Concomitant]
     Active Substance: CILGAVIMAB\TIXAGEVIMAB
  9. EYE VITAMIN [Concomitant]
  10. FAMOTIDINE [Concomitant]
     Active Substance: FAMOTIDINE
  11. FERROUSOL [Concomitant]
  12. FISH OIL [Concomitant]
     Active Substance: FISH OIL
  13. GLUCOSAMINE [Concomitant]
     Active Substance: GLUCOSAMINE
  14. HEPARIN [Concomitant]
     Active Substance: HEPARIN SODIUM
  15. IBUPROFEN [Concomitant]
     Active Substance: IBUPROFEN
  16. K-DUR [Concomitant]
     Active Substance: POTASSIUM CHLORIDE
  17. KEPPRA [Concomitant]
     Active Substance: LEVETIRACETAM
  18. LAMISIL [Concomitant]
     Active Substance: TERBINAFINE HYDROCHLORIDE
  19. LIPITOR [Concomitant]
     Active Substance: ATORVASTATIN CALCIUM
  20. LISINOPRIL [Concomitant]
     Active Substance: LISINOPRIL
  21. LOSARTAN [Concomitant]
     Active Substance: LOSARTAN
  22. LUTEIN [Concomitant]
     Active Substance: LUTEIN
  23. NORVASC [Concomitant]
     Active Substance: AMLODIPINE BESYLATE
  24. ONDANSETRON [Concomitant]
     Active Substance: ONDANSETRON
  25. PREDNISONE [Concomitant]
     Active Substance: PREDNISONE
  26. MINERALS\VITAMINS [Concomitant]
     Active Substance: MINERALS\VITAMINS
  27. PRILOSEC [Concomitant]
     Active Substance: OMEPRAZOLE MAGNESIUM
  28. RITUXAN [Concomitant]
     Active Substance: RITUXIMAB
  29. SORIATANE [Concomitant]
     Active Substance: ACITRETIN
  30. TAMSULOSIN [Concomitant]
     Active Substance: TAMSULOSIN
  31. TRIAMCINOLONE [Concomitant]
     Active Substance: TRIAMCINOLONE
  32. VITAMIN C [Concomitant]
     Active Substance: ASCORBIC ACID
  33. VITAMIN D3 [Concomitant]
     Active Substance: CHOLECALCIFEROL

REACTIONS (1)
  - Hospice care [None]
